FAERS Safety Report 8004988-1 (Version None)
Quarter: 2011Q4

REPORT INFORMATION
  Report Type: 
  Country: None (occurrence: None)
  Receive Date: 20111223
  Receipt Date: 20111222
  Transmission Date: 20120403
  Serious: Yes (Hospitalization)
  Sender: FDA-Public Use
  Company Number: IT-SANOFI-AVENTIS-2011SA081053

PATIENT
  Age: 57 Year
  Sex: Male

DRUGS (10)
  1. LASIX [Suspect]
     Indication: OEDEMA
     Route: 048
     Dates: start: 20090101, end: 20111014
  2. HALOPERIDOL [Suspect]
     Route: 030
     Dates: start: 20090101, end: 20111014
  3. IRON [Concomitant]
     Route: 048
  4. PREFOLIC [Concomitant]
     Route: 048
  5. ZYPREXA [Suspect]
     Route: 048
     Dates: start: 20090101, end: 20111014
  6. AMLODIPINE BESYLATE [Suspect]
     Route: 048
     Dates: start: 20090101, end: 20111014
  7. CALCIUM CARBONATE/COLECALCIFEROL [Concomitant]
     Route: 048
  8. BENEXOL [Concomitant]
     Route: 048
  9. NADROPARIN [Concomitant]
     Route: 058
  10. PANTOPRAZOLE SODIUM [Suspect]
     Route: 048
     Dates: start: 20090101, end: 20111014

REACTIONS (1)
  - CONFUSIONAL STATE [None]
